FAERS Safety Report 11071050 (Version 2)
Quarter: 2015Q2

REPORT INFORMATION
  Report Type: Report from Study
  Country: US (occurrence: US)
  Receive Date: 20150428
  Receipt Date: 20150521
  Transmission Date: 20150821
  Serious: Yes (Other)
  Sender: FDA-Public Use
  Company Number: US-009507513-1504USA021842

PATIENT

DRUGS (8)
  1. RANITIDINE [Concomitant]
     Active Substance: RANITIDINE\RANITIDINE HYDROCHLORIDE
     Dosage: 50MG
     Route: 042
  2. PACLITAXEL. [Suspect]
     Active Substance: PACLITAXEL
     Indication: CERVIX CARCINOMA
     Dosage: 175 MG/M2, ON DAY 4
     Route: 042
  3. ISOTRETINOIN [Suspect]
     Active Substance: ISOTRETINOIN
     Indication: CERVIX CARCINOMA
     Dosage: 1 MG/KG PER DAY ON DAYS 1 TO 4 OF EACH CYCLE
     Route: 048
  4. ACETAMINOPHEN. [Concomitant]
     Active Substance: ACETAMINOPHEN
     Dosage: 650MG
     Route: 048
  5. INTRON A [Suspect]
     Active Substance: INTERFERON ALFA-2B
     Indication: CERVIX CARCINOMA
     Dosage: 6 MU/M2 ON DAYS 1 TO 4 OF EACH CYCLE
     Route: 058
  6. DIPHENHYDRAMINE [Concomitant]
     Active Substance: DIPHENHYDRAMINE
     Dosage: 50MG
     Route: 042
  7. HEXADROL [Concomitant]
     Active Substance: DEXAMETHASONE
     Dosage: 20MG
     Route: 042
  8. HEXADROL [Concomitant]
     Active Substance: DEXAMETHASONE
     Dosage: 20MG
     Route: 048

REACTIONS (1)
  - Neutropenia [Unknown]
